FAERS Safety Report 6033406-8 (Version None)
Quarter: 2009Q1

REPORT INFORMATION
  Report Type: 
  Country: None (occurrence: None)
  Receive Date: 20090108
  Receipt Date: 20071206
  Transmission Date: 20090719
  Serious: Yes (Other)
  Sender: FDA-Public Use
  Company Number: 07H-163-0313563-00

PATIENT

DRUGS (1)
  1. VANCOMYCIN HCL [Suspect]
     Indication: DRUG USE FOR UNKNOWN INDICATION
     Dosage: 10MG/KG/DOSE TO 30MG/KG DOSE, Q6H (NOT REPORTED)
     Dates: start: 20071017

REACTIONS (1)
  - RENAL FAILURE ACUTE [None]
